FAERS Safety Report 16188031 (Version 2)
Quarter: 2019Q2

REPORT INFORMATION
  Report Type: Spontaneous
  Country: US (occurrence: US)
  Receive Date: 20190412
  Receipt Date: 20190507
  Transmission Date: 20190711
  Serious: No
  Sender: FDA-Public Use
  Company Number: US-ASTRAZENECA-2019SE47977

PATIENT
  Sex: Female
  Weight: 51.3 kg

DRUGS (4)
  1. PREDNISONE. [Concomitant]
     Active Substance: PREDNISONE
  2. SYMBICORT [Suspect]
     Active Substance: BUDESONIDE\FORMOTEROL FUMARATE DIHYDRATE
     Indication: LUNG DISORDER
     Dosage: 2 PUFFS TWICE A DAY
     Route: 055
     Dates: start: 2015
  3. SYMBICORT [Suspect]
     Active Substance: BUDESONIDE\FORMOTEROL FUMARATE DIHYDRATE
     Indication: PNEUMONIA
     Dosage: 2 PUFFS TWICE A DAY
     Route: 055
     Dates: start: 2015
  4. SYMBICORT [Suspect]
     Active Substance: BUDESONIDE\FORMOTEROL FUMARATE DIHYDRATE
     Indication: BRONCHIECTASIS
     Dosage: 2 PUFFS TWICE A DAY
     Route: 055
     Dates: start: 2015

REACTIONS (15)
  - Condition aggravated [Unknown]
  - Insurance issue [Unknown]
  - Hypokinesia [Unknown]
  - Neuropathy peripheral [Unknown]
  - Insomnia [Unknown]
  - Off label use [Unknown]
  - Product dose omission [Unknown]
  - Lung infection [Unknown]
  - Back pain [Unknown]
  - Neck pain [Unknown]
  - Ligament rupture [Unknown]
  - Product use in unapproved indication [Unknown]
  - Peripheral swelling [Unknown]
  - Intentional product misuse [Unknown]
  - Cervical cord compression [Unknown]
